FAERS Safety Report 7491580-0 (Version None)
Quarter: 2011Q1

REPORT INFORMATION
  Report Type: 
  Country: None (occurrence: None)
  Receive Date: 20110318
  Receipt Date: 20090212
  Transmission Date: 20110831
  Serious: Yes (Other)
  Sender: FDA-Public Use
  Company Number: 1-0209-03

PATIENT
  Age: 6 Year
  Sex: Female

DRUGS (3)
  1. IVORY [Concomitant]
  2. DERMA-SMOOTHE/FS [Suspect]
     Indication: ECZEMA
     Dosage: TOPICAL
     Route: 061
  3. CETAPHIL SOAP [Concomitant]

REACTIONS (3)
  - SKIN MACERATION [None]
  - SKIN CHAPPED [None]
  - ERYTHEMA [None]
